FAERS Safety Report 16844509 (Version 1)
Quarter: 2019Q3

REPORT INFORMATION
  Report Type: Report from Study
  Country: US (occurrence: US)
  Receive Date: 20190924
  Receipt Date: 20190924
  Transmission Date: 20191005
  Serious: Yes (Death, Hospitalization)
  Sender: FDA-Public Use
  Company Number: US-TEVA-2019-US-1112287

PATIENT
  Age: 83 Year
  Sex: Female

DRUGS (3)
  1. ALLOPURINOL. [Suspect]
     Active Substance: ALLOPURINOL
     Route: 065
  2. COLCHICINE. [Suspect]
     Active Substance: COLCHICINE
     Route: 065
  3. METRONIDAZOLE. [Suspect]
     Active Substance: METRONIDAZOLE
     Route: 065

REACTIONS (1)
  - Toxic epidermal necrolysis [Fatal]
